FAERS Safety Report 14189202 (Version 1)
Quarter: 2017Q4

REPORT INFORMATION
  Report Type: Spontaneous
  Country: US (occurrence: US)
  Receive Date: 20171115
  Receipt Date: 20171115
  Transmission Date: 20180321
  Serious: Yes (Death)
  Sender: FDA-Public Use
  Company Number: US-ROCHE-2022829

PATIENT
  Sex: Female
  Weight: 74.91 kg

DRUGS (1)
  1. AVASTIN [Suspect]
     Active Substance: BEVACIZUMAB
     Indication: ENDOMETRIAL CANCER
     Dosage: 400MG/16 ML
     Route: 042
     Dates: start: 20170607

REACTIONS (3)
  - Intentional product use issue [Fatal]
  - Death [Fatal]
  - Off label use [Fatal]
